FAERS Safety Report 16104734 (Version 4)
Quarter: 2019Q2

REPORT INFORMATION
  Report Type: Spontaneous
  Country: MM (occurrence: MM)
  Receive Date: 20190322
  Receipt Date: 20190610
  Transmission Date: 20190711
  Serious: Yes (Hospitalization, Other)
  Sender: FDA-Public Use
  Company Number: MM-JNJFOC-20190317950

PATIENT
  Age: 21 Year
  Sex: Male
  Weight: 37 kg

DRUGS (8)
  1. CALCIVITA [Concomitant]
     Active Substance: CALCIUM\VITAMINS
     Indication: HYPOCALCAEMIA
     Route: 048
     Dates: start: 20190301, end: 20190530
  2. PYRAZINAMIDE. [Suspect]
     Active Substance: PYRAZINAMIDE
     Indication: TUBERCULOSIS
     Route: 065
     Dates: start: 20190222
  3. CLOFAZIMINE [Suspect]
     Active Substance: CLOFAZIMINE
     Indication: TUBERCULOSIS
     Route: 065
     Dates: start: 20190222, end: 20190312
  4. BEDAQUILINE [Suspect]
     Active Substance: BEDAQUILINE
     Indication: TUBERCULOSIS
     Route: 048
     Dates: start: 20190222, end: 20190312
  5. METOPROLOL. [Concomitant]
     Active Substance: METOPROLOL
  6. LINEZOLID. [Suspect]
     Active Substance: LINEZOLID
     Indication: TUBERCULOSIS
     Route: 065
     Dates: start: 20190222
  7. PARA-AMINOSALICYLIC ACID [Suspect]
     Active Substance: AMINOSALICYLIC ACID
     Indication: TUBERCULOSIS
     Route: 065
     Dates: start: 20190222
  8. DELAMANID [Suspect]
     Active Substance: DELAMANID
     Indication: TUBERCULOSIS
     Route: 065
     Dates: start: 20190222, end: 20190312

REACTIONS (5)
  - Hypokalaemia [Not Recovered/Not Resolved]
  - Inflammatory bowel disease [Unknown]
  - Hepatitis [Unknown]
  - Nephritis [Unknown]
  - Electrocardiogram QT prolonged [Recovered/Resolved]

NARRATIVE: CASE EVENT DATE: 20190222
